FAERS Safety Report 4301560-1 (Version None)
Quarter: 2004Q1

REPORT INFORMATION
  Report Type: 
  Country: None (occurrence: None)
  Receive Date: 20040219
  Receipt Date: 20040211
  Transmission Date: 20041129
  Serious: Yes (Hospitalization)
  Sender: FDA-Public Use
  Company Number: 2003CG01752

PATIENT
  Age: 78 Year
  Sex: Male

DRUGS (3)
  1. CASODEX [Suspect]
     Indication: PROSTATE CANCER
     Dosage: 50 MG DAILY PO
     Route: 048
     Dates: start: 20030915, end: 20031022
  2. CASODEX [Suspect]
     Indication: PROSTATE CANCER
     Dosage: 50 MG DAILY PO
     Route: 048
     Dates: start: 20030101
  3. ZOLADEX [Suspect]
     Indication: PROSTATE CANCER
     Dates: start: 20030923

REACTIONS (6)
  - ARTHRALGIA [None]
  - CYTOLYTIC HEPATITIS [None]
  - JOINT EFFUSION [None]
  - NORMOCHROMIC NORMOCYTIC ANAEMIA [None]
  - SKIN DESQUAMATION [None]
  - WEBER-CHRISTIAN DISEASE [None]
